FAERS Safety Report 7334812-1 (Version None)
Quarter: 2011Q1

REPORT INFORMATION
  Report Type: 
  Country: None (occurrence: None)
  Receive Date: 20110222
  Receipt Date: 20110210
  Transmission Date: 20110831
  Serious: Yes (Death)
  Sender: FDA-Public Use
  Company Number: B0700511A

PATIENT
  Age: 45 Year
  Sex: Female

DRUGS (4)
  1. DEXAMETHASONE [Concomitant]
  2. VINCRISTINE [Concomitant]
  3. MELPHALAN (MELPHALAN) INJECTION) (GENERIC) [Suspect]
     Indication: MULTIPLE MYELOMA
  4. DOXORUBICIN HCL [Concomitant]

REACTIONS (6)
  - MULTI-ORGAN FAILURE [None]
  - RENAL FAILURE ACUTE [None]
  - HAEMODIALYSIS [None]
  - MYELOMA RECURRENCE [None]
  - ACUTE RESPIRATORY DISTRESS SYNDROME [None]
  - PULMONARY HAEMORRHAGE [None]
